FAERS Safety Report 7454292-5 (Version None)
Quarter: 2011Q2

REPORT INFORMATION
  Report Type: 
  Country: None (occurrence: None)
  Receive Date: 20110503
  Receipt Date: 20110425
  Transmission Date: 20111010
  Serious: Yes (Hospitalization)
  Sender: FDA-Public Use
  Company Number: US-US-EMD SERONO, INC.-7053991

PATIENT
  Sex: Female
  Weight: 92 kg

DRUGS (6)
  1. TOPAMAX [Concomitant]
  2. REBIF [Suspect]
     Route: 058
  3. REBIF [Suspect]
     Route: 058
     Dates: start: 20110317
  4. PREDNISONE [Concomitant]
     Indication: PLEURISY
  5. GABAPENTIN [Concomitant]
  6. REBIF [Suspect]
     Indication: PRODUCT USED FOR UNKNOWN INDICATION
     Route: 058

REACTIONS (8)
  - INTERVERTEBRAL DISC PROTRUSION [None]
  - CHILLS [None]
  - PAIN [None]
  - PLEURISY [None]
  - RAYNAUD'S PHENOMENON [None]
  - INJECTION SITE ERYTHEMA [None]
  - FATIGUE [None]
  - INJECTION SITE VESICLES [None]
